FAERS Safety Report 5810461-9 (Version None)
Quarter: 2008Q3

REPORT INFORMATION
  Report Type: 
  Country: None (occurrence: None)
  Receive Date: 20080715
  Receipt Date: 20080709
  Transmission Date: 20090109
  Serious: Yes (Disabling, Other)
  Sender: FDA-Public Use
  Company Number: DE-PFIZER INC-2008054196

PATIENT
  Sex: Female
  Weight: 67 kg

DRUGS (2)
  1. XALATAN [Suspect]
     Indication: GLAUCOMA
     Dosage: TEXT:ONE DROP PER EYE
     Route: 047
  2. AZOPT [Suspect]
     Indication: GLAUCOMA
     Dosage: TEXT:TWO DROPS PER EYE
     Route: 047

REACTIONS (2)
  - INDURATION [None]
  - MYALGIA [None]
